FAERS Safety Report 6704290-1 (Version None)
Quarter: 2010Q2

REPORT INFORMATION
  Report Type: 
  Country: None (occurrence: None)
  Receive Date: 20100430
  Receipt Date: 20100115
  Transmission Date: 20101027
  Serious: No
  Sender: FDA-Public Use
  Company Number: US-BAYER-201012419NA

PATIENT
  Age: 50 Year
  Sex: Female
  Weight: 66 kg

DRUGS (7)
  1. ULTRAVIST 300 [Suspect]
     Indication: COMPUTERISED TOMOGRAM ABDOMEN
     Dosage: LEFT  ANTECUBITAL USING WARMING AND POWER INJECTOR @ INJECTION RATE 3.0ML/SEC.
     Route: 042
     Dates: start: 20100115, end: 20100115
  2. LANTUS [Concomitant]
  3. HUMALOG [Concomitant]
  4. DIOVAN [Concomitant]
  5. PREDNISONE [Concomitant]
     Indication: PREMEDICATION
     Dosage: TOTAL DAILY DOSE: 50 MG
     Route: 048
     Dates: start: 20100115, end: 20100115
  6. BENADRYL [Concomitant]
     Indication: PREMEDICATION
     Dosage: TOTAL DAILY DOSE: 50 MG
     Route: 048
     Dates: start: 20100115, end: 20100115
  7. VOLUVEN [Concomitant]
     Indication: COMPUTERISED TOMOGRAM ABDOMEN
     Route: 048
     Dates: start: 20100115, end: 20100115

REACTIONS (2)
  - ERYTHEMA [None]
  - PRURITUS [None]
